FAERS Safety Report 6389576-5 (Version None)
Quarter: 2009Q4

REPORT INFORMATION
  Report Type: 
  Country: None (occurrence: None)
  Receive Date: 20091006
  Receipt Date: 20090928
  Transmission Date: 20100525
  Serious: Yes (Other)
  Sender: FDA-Public Use
  Company Number: US-ALEXION-A200900643

PATIENT
  Sex: Female

DRUGS (13)
  1. SOLIRIS [Suspect]
     Indication: PAROXYSMAL NOCTURNAL HAEMOGLOBINURIA
     Dosage: 600 MG, QW
     Route: 042
     Dates: start: 20070918, end: 20071009
  2. SOLIRIS [Suspect]
     Dosage: 900 MG, Q2W
     Route: 042
     Dates: start: 20071016, end: 20090101
  3. SOLIRIS [Suspect]
     Dosage: 700 MG, ONCE
     Route: 042
     Dates: start: 20090101, end: 20090101
  4. SOLIRIS [Suspect]
     Dosage: 900 MG, Q2W
     Route: 042
     Dates: start: 20090101
  5. FOLIC ACID [Concomitant]
     Dosage: UNK
  6. MORPHINE [Concomitant]
     Dosage: 30 MG, PRN
     Route: 048
  7. VALIUM [Concomitant]
     Dosage: 5 MG, PRN
     Route: 048
  8. AMBIEN [Concomitant]
     Dosage: 10 MG, QD
     Route: 048
  9. LEXAPRO [Concomitant]
     Dosage: 20 MG, QD
     Route: 048
  10. ORAL CONTRACEPTIVE NOS [Concomitant]
     Indication: CONTRACEPTION
     Dosage: QD
     Route: 048
  11. NEUPOGEN [Concomitant]
     Dosage: 300 MCG 2-3 TIMES PER WEEK
  12. ZOFRAN [Concomitant]
     Indication: NAUSEA
     Dosage: UNK
     Route: 048
  13. PHENERGAN HCL [Concomitant]
     Indication: NAUSEA
     Dosage: UNK
     Route: 048

REACTIONS (2)
  - DIARRHOEA [None]
  - OVARIAN CYST [None]
